FAERS Safety Report 10273706 (Version 1)
Quarter: 2014Q3

REPORT INFORMATION
  Report Type: Spontaneous
  Country: US (occurrence: US)
  Receive Date: 20140702
  Receipt Date: 20140702
  Transmission Date: 20150326
  Serious: Yes (Other)
  Sender: FDA-Public Use
  Company Number: US-ASTRAZENECA-2014SE46245

PATIENT
  Age: 94 Year
  Sex: Male
  Weight: 70.3 kg

DRUGS (6)
  1. FLOMAX [Concomitant]
     Active Substance: TAMSULOSIN HYDROCHLORIDE
     Dates: end: 201406
  2. WARFARIN [Concomitant]
     Active Substance: WARFARIN
     Dosage: 1.5 OR 2 MG
  3. NEXIUM [Suspect]
     Active Substance: ESOMEPRAZOLE MAGNESIUM
     Route: 048
     Dates: end: 201406
  4. WARFARIN [Concomitant]
     Active Substance: WARFARIN
     Dosage: 3 MG SIX TIMES EVERY WEEK, ONE TABLET A DAY AND A HALF ON SATURDAY
     Dates: start: 201405
  5. HEPARIN [Concomitant]
     Active Substance: HEPARIN SODIUM
  6. NEXIUM [Suspect]
     Active Substance: ESOMEPRAZOLE MAGNESIUM
     Route: 048

REACTIONS (17)
  - Thrombosis [Unknown]
  - Lung disorder [Unknown]
  - Myocardial infarction [Unknown]
  - Renal failure [Unknown]
  - Pneumonia aspiration [Unknown]
  - Aortic aneurysm [Unknown]
  - Chronic obstructive pulmonary disease [Unknown]
  - Dehydration [Unknown]
  - Diarrhoea [Unknown]
  - Blindness transient [Unknown]
  - Dyspepsia [Unknown]
  - Sepsis [Unknown]
  - Abdominal pain [Unknown]
  - Transient ischaemic attack [Unknown]
  - Fall [Unknown]
  - Pulmonary embolism [Unknown]
  - Prostatic disorder [Unknown]

NARRATIVE: CASE EVENT DATE: 2011
